FAERS Safety Report 5113566-3 (Version None)
Quarter: 2006Q3

REPORT INFORMATION
  Report Type: 
  Country: None (occurrence: None)
  Receive Date: 20060920
  Receipt Date: 20060829
  Transmission Date: 20061208
  Serious: Yes (Hospitalization)
  Sender: FDA-Public Use
  Company Number: JP200609000002

PATIENT
  Age: 92 Year
  Sex: Female

DRUGS (3)
  1. RALOXIFENE HCL [Suspect]
     Indication: OSTEOPOROSIS POSTMENOPAUSAL
     Dosage: 60 MG, DAILY (1/D),  ORAL
     Route: 048
     Dates: end: 20050603
  2. LANSOPRAZOLE [Concomitant]
  3. KETAS (IBUDILAST) [Concomitant]

REACTIONS (2)
  - HAEMATURIA [None]
  - UPPER GASTROINTESTINAL HAEMORRHAGE [None]
